FAERS Safety Report 7323275-8 (Version None)
Quarter: 2011Q1

REPORT INFORMATION
  Report Type: 
  Country: None (occurrence: None)
  Receive Date: 20110301
  Receipt Date: 20110221
  Transmission Date: 20110831
  Serious: Yes (Other)
  Sender: FDA-Public Use
  Company Number: US-ELI_LILLY_AND_COMPANY-US201102005680

PATIENT
  Sex: Female

DRUGS (6)
  1. HUMALOG [Suspect]
     Indication: DIABETES MELLITUS
     Dosage: 6 U, EACH MORNING
     Dates: start: 20060101
  2. HUMULIN N [Suspect]
     Indication: DIABETES MELLITUS
     Dosage: 52 U, DAILY (1/D)
     Dates: start: 20060101
  3. HUMALOG [Suspect]
     Dosage: 36 U, OTHER
     Dates: start: 20060101
  4. HUMALOG [Suspect]
     Dosage: 76 U, EACH EVENING
     Dates: start: 20060101
  5. KLOR-CON [Concomitant]
     Dosage: 100 MG, UNKNOWN
  6. INSULIN [Concomitant]

REACTIONS (10)
  - TREMOR [None]
  - DRUG INTERACTION [None]
  - BLOOD POTASSIUM DECREASED [None]
  - MUSCULAR WEAKNESS [None]
  - IMPLANTABLE DEFIBRILLATOR INSERTION [None]
  - BACK PAIN [None]
  - THERAPEUTIC PRODUCT INEFFECTIVE [None]
  - MYOCARDIAL INFARCTION [None]
  - DYSKINESIA [None]
  - ERUCTATION [None]
